FAERS Safety Report 13978191 (Version 3)
Quarter: 2018Q2

REPORT INFORMATION
  Report Type: Report from Study
  Country: US (occurrence: US)
  Receive Date: 20170915
  Receipt Date: 20180529
  Transmission Date: 20180711
  Serious: Yes (Life-Threatening, Hospitalization)
  Sender: FDA-Public Use
  Company Number: US-ACTELION-A-NJ2017-159299

PATIENT
  Age: 75 Year
  Sex: Female

DRUGS (1)
  1. OPSUMIT [Suspect]
     Active Substance: MACITENTAN
     Indication: PULMONARY ARTERIAL HYPERTENSION
     Dosage: 10 MG, QD
     Route: 048
     Dates: start: 20160428

REACTIONS (8)
  - Gastrooesophageal reflux disease [Unknown]
  - Pneumonia [Recovering/Resolving]
  - Pneumothorax [Recovering/Resolving]
  - Lower respiratory tract congestion [Recovering/Resolving]
  - Hypertension [Unknown]
  - Dyspnoea [Recovering/Resolving]
  - Cardiac disorder [Unknown]
  - Respiratory failure [Recovering/Resolving]
